FAERS Safety Report 8961887 (Version 2)
Quarter: 2013Q3

REPORT INFORMATION
  Report Type: Spontaneous
  Country: GB (occurrence: GB)
  Receive Date: 20121212
  Receipt Date: 20130927
  Transmission Date: 20140515
  Serious: Yes (Hospitalization, Other)
  Sender: FDA-Public Use
  Company Number: PHHY2012GB113972

PATIENT
  Sex: 0

DRUGS (3)
  1. METHOTREXATE [Suspect]
     Indication: RHEUMATOID ARTHRITIS
     Dosage: 10 MG QW
     Route: 048
     Dates: start: 2000, end: 20050124
  2. IBUPROFEN [Interacting]
     Indication: PAIN
     Dosage: 1.2 TO 1.6 GRAMS DAILY
     Route: 048
     Dates: end: 20050124
  3. LOESTRIN [Concomitant]
     Indication: CONTRACEPTION
     Dosage: 1 DF
     Route: 065

REACTIONS (7)
  - Infection [Not Recovered/Not Resolved]
  - Hyperhidrosis [Not Recovered/Not Resolved]
  - Pyrexia [Not Recovered/Not Resolved]
  - Hepatotoxicity [Not Recovered/Not Resolved]
  - Hepatic enzyme increased [Not Recovered/Not Resolved]
  - Drug interaction [Unknown]
  - Chills [Not Recovered/Not Resolved]
